FAERS Safety Report 5241207-3 (Version None)
Quarter: 2007Q1

REPORT INFORMATION
  Report Type: 
  Country: None (occurrence: None)
  Receive Date: 20070215
  Receipt Date: 20070215
  Transmission Date: 20070707
  Serious: Yes (Hospitalization)
  Sender: FDA-Public Use
  Company Number: None

PATIENT
  Age: 86 Year
  Sex: Male

DRUGS (11)
  1. GLIPIZIDE [Suspect]
     Indication: DIABETES MELLITUS NON-INSULIN-DEPENDENT
     Dosage: 10MC QAM 5 MC QPM
     Dates: start: 20060103
  2. ZITHROMAX [Concomitant]
  3. CALCITRIOL [Concomitant]
  4. DARBEPOETIN [Concomitant]
  5. ADALAT CC [Concomitant]
  6. POTASSIUM CHLORIDE [Concomitant]
  7. TAMSULOSIN HCL [Concomitant]
  8. ISOSORBIDE [Concomitant]
  9. LISINOPRIL [Concomitant]
  10. OMEPRAZOLE [Concomitant]
  11. ZOCOR [Concomitant]

REACTIONS (1)
  - LOSS OF CONSCIOUSNESS [None]
